FAERS Safety Report 23874739 (Version 2)
Quarter: 2024Q4

REPORT INFORMATION
  Report Type: Spontaneous
  Country: CA (occurrence: CA)
  Receive Date: 20240520
  Receipt Date: 20241217
  Transmission Date: 20250114
  Serious: Yes (Hospitalization)
  Sender: SANDOZ
  Company Number: CA-SANDOZ-SDZ2024CA049541

PATIENT
  Age: 42 Year
  Sex: Male

DRUGS (54)
  1. ABILIFY MAINTENA [Suspect]
     Active Substance: ARIPIPRAZOLE
     Indication: Psychotic disorder
     Dosage: 400 MG, QMO, KIT
     Route: 030
  2. AMITRIPTYLINE [Suspect]
     Active Substance: AMITRIPTYLINE
     Indication: Sleep disorder
     Dosage: 10 MG, QD
     Route: 048
  3. AMITRIPTYLINE [Suspect]
     Active Substance: AMITRIPTYLINE
     Indication: Affective disorder
     Dosage: 10 MG, QD
     Route: 065
  4. APIDRA [Suspect]
     Active Substance: INSULIN GLULISINE
     Indication: Diabetes mellitus
     Dosage: UNK, BID
     Route: 058
  5. APIDRA [Suspect]
     Active Substance: INSULIN GLULISINE
     Dosage: UNK, BID
     Route: 065
  6. APIDRA [Suspect]
     Active Substance: INSULIN GLULISINE
     Dosage: 1 EVERY .5 DAYS
     Route: 058
  7. APIDRA [Suspect]
     Active Substance: INSULIN GLULISINE
     Dosage: 1 EVERY .5 DAYS
     Route: 058
  8. APIDRA [Suspect]
     Active Substance: INSULIN GLULISINE
     Dosage: 1 EVERY .5 DAYS
     Route: 058
  9. CABENUVA [Suspect]
     Active Substance: CABOTEGRAVIR\RILPIVIRINE
     Indication: HIV infection
     Dosage: UNK
     Route: 030
  10. CABENUVA [Suspect]
     Active Substance: CABOTEGRAVIR\RILPIVIRINE
     Dosage: UNK
     Route: 030
  11. CABOTEGRAVIR [Suspect]
     Active Substance: CABOTEGRAVIR
     Indication: HIV infection
     Dosage: UNK
     Route: 030
  12. COCAINE [Suspect]
     Active Substance: COCAINE
     Indication: Product used for unknown indication
     Dosage: UNK
     Route: 065
  13. DOXEPIN HYDROCHLORIDE [Suspect]
     Active Substance: DOXEPIN HYDROCHLORIDE
     Indication: Sleep disorder
     Dosage: 10 MG, QD
     Route: 048
  14. DOXEPIN HYDROCHLORIDE [Suspect]
     Active Substance: DOXEPIN HYDROCHLORIDE
     Indication: Affective disorder
     Dosage: UNK
     Route: 065
  15. JANUVIA [Suspect]
     Active Substance: SITAGLIPTIN PHOSPHATE
     Indication: Diabetes mellitus
     Dosage: 100 MG, QD
     Route: 065
  16. JANUVIA [Suspect]
     Active Substance: SITAGLIPTIN PHOSPHATE
     Dosage: 100 MG, QD
     Route: 065
  17. JARDIANCE [Suspect]
     Active Substance: EMPAGLIFLOZIN
     Indication: Diabetes mellitus
     Dosage: 25 MG, QD
     Route: 048
  18. METHAMPHETAMINE [Suspect]
     Active Substance: METHAMPHETAMINE
     Indication: Product used for unknown indication
     Dosage: UNK
     Route: 065
  19. METHAMPHETAMINE [Suspect]
     Active Substance: METHAMPHETAMINE
     Dosage: UNK
     Route: 065
  20. RILPIVIRINE [Suspect]
     Active Substance: RILPIVIRINE
     Indication: HIV infection
     Dosage: UNK
     Route: 030
  21. GLICLAZIDE [Suspect]
     Active Substance: GLICLAZIDE
     Dosage: 30 MG, BID
     Route: 048
  22. GLICLAZIDE [Suspect]
     Active Substance: GLICLAZIDE
     Dosage: 30 MG, BID
     Route: 048
  23. GLICLAZIDE [Suspect]
     Active Substance: GLICLAZIDE
     Dosage: 30 MG, BID
     Route: 048
  24. GLICLAZIDE [Suspect]
     Active Substance: GLICLAZIDE
     Dosage: 30 MG, BID
     Route: 048
  25. GLICLAZIDE [Suspect]
     Active Substance: GLICLAZIDE
     Dosage: 60 MG, BID
     Route: 048
  26. GLICLAZIDE [Suspect]
     Active Substance: GLICLAZIDE
     Dosage: 60 MG, BID
     Route: 048
  27. GLICLAZIDE [Suspect]
     Active Substance: GLICLAZIDE
     Dosage: 60 MG, BID
     Route: 048
  28. GLICLAZIDE [Suspect]
     Active Substance: GLICLAZIDE
     Indication: Product used for unknown indication
     Dosage: 60 MG, BID
     Route: 065
  29. METFORMIN HYDROCHLORIDE [Suspect]
     Active Substance: METFORMIN HYDROCHLORIDE
     Indication: Diabetes mellitus
     Dosage: 500 MG, BID
     Route: 048
  30. METFORMIN HYDROCHLORIDE [Suspect]
     Active Substance: METFORMIN HYDROCHLORIDE
     Dosage: 500 MG, BID
     Route: 065
  31. ROSUVASTATIN CALCIUM [Suspect]
     Active Substance: ROSUVASTATIN CALCIUM
     Indication: Blood cholesterol abnormal
     Dosage: 10 MG, QD
     Route: 048
  32. ROSUVASTATIN CALCIUM [Suspect]
     Active Substance: ROSUVASTATIN CALCIUM
     Dosage: 10 MG, QD
     Route: 065
  33. TRANDOLAPRIL [Suspect]
     Active Substance: TRANDOLAPRIL
     Indication: Blood pressure abnormal
     Dosage: 1 MG, QD
     Route: 048
  34. TRANDOLAPRIL [Suspect]
     Active Substance: TRANDOLAPRIL
     Dosage: 1 MG, QD
     Route: 048
  35. SITAGLIPTIN PHOSPHATE [Suspect]
     Active Substance: SITAGLIPTIN PHOSPHATE
     Indication: Diabetes mellitus
     Dosage: 100 MG, QD
     Route: 048
  36. SEMAGLUTIDE [Suspect]
     Active Substance: SEMAGLUTIDE
     Indication: Diabetes mellitus
     Dosage: 1 MG, QW
     Route: 058
  37. SEMAGLUTIDE [Suspect]
     Active Substance: SEMAGLUTIDE
     Indication: Weight decreased
     Dosage: 1 MG, QW
     Route: 058
  38. TOPIRAMATE [Suspect]
     Active Substance: TOPIRAMATE
     Indication: Anxiety
     Dosage: 25 MG, QD
     Route: 048
  39. TOPIRAMATE [Suspect]
     Active Substance: TOPIRAMATE
     Dosage: 25 MG, QD
     Route: 048
  40. TOPIRAMATE [Suspect]
     Active Substance: TOPIRAMATE
     Dosage: 25 MG
     Route: 048
  41. TOUJEO [Suspect]
     Active Substance: INSULIN GLARGINE
     Indication: Diabetes mellitus
     Dosage: 25 IU, QD
     Route: 058
  42. TOUJEO [Suspect]
     Active Substance: INSULIN GLARGINE
     Dosage: 25 IU, QD
     Route: 058
  43. TRAZODONE [Suspect]
     Active Substance: TRAZODONE HYDROCHLORIDE
     Indication: Sleep disorder
     Dosage: 50 MG, QD
     Route: 048
  44. TRAZODONE [Suspect]
     Active Substance: TRAZODONE HYDROCHLORIDE
     Dosage: 50 MG
     Route: 065
  45. DIVALPROEX SODIUM [Suspect]
     Active Substance: DIVALPROEX SODIUM
     Indication: Product used for unknown indication
     Dosage: 500 MG, QD
     Route: 048
  46. DIVALPROEX SODIUM [Suspect]
     Active Substance: DIVALPROEX SODIUM
     Dosage: 500 MG, BID
     Route: 048
  47. DIVALPROEX SODIUM [Suspect]
     Active Substance: DIVALPROEX SODIUM
     Dosage: 500 MG, BID
     Route: 048
  48. DIVALPROEX SODIUM [Suspect]
     Active Substance: DIVALPROEX SODIUM
     Dosage: 500 MG, BID
     Route: 065
  49. VALPROIC ACID [Suspect]
     Active Substance: VALPROIC ACID
     Indication: Product used for unknown indication
     Dosage: 500 MG, BID
     Route: 065
  50. ABACAVIR SULFATE\DOLUTEGRAVIR SODIUM\LAMIVUDINE [Concomitant]
     Active Substance: ABACAVIR SULFATE\DOLUTEGRAVIR SODIUM\LAMIVUDINE
     Indication: HIV infection
     Dosage: UNK
     Route: 065
  51. ABACAVIR SULFATE\DOLUTEGRAVIR SODIUM\LAMIVUDINE [Concomitant]
     Active Substance: ABACAVIR SULFATE\DOLUTEGRAVIR SODIUM\LAMIVUDINE
     Dosage: UNK
     Route: 065
  52. CABOTEGRAVIR SODIUM [Concomitant]
     Active Substance: CABOTEGRAVIR SODIUM
     Indication: HIV infection
     Dosage: 30 MG
     Route: 048
  53. CABOTEGRAVIR SODIUM [Concomitant]
     Active Substance: CABOTEGRAVIR SODIUM
     Dosage: 30 MG
     Route: 048
  54. EDURANT [Concomitant]
     Active Substance: RILPIVIRINE HYDROCHLORIDE
     Indication: HIV infection
     Dosage: 25 MG
     Route: 048

REACTIONS (6)
  - Psychotic disorder [Recovered/Resolved]
  - Substance use [Recovered/Resolved]
  - Aggression [Recovered/Resolved]
  - Inappropriate schedule of product administration [Recovered/Resolved]
  - Product dose omission issue [Recovered/Resolved]
  - Product use in unapproved indication [Recovered/Resolved]
